FAERS Safety Report 11964555 (Version 1)
Quarter: 2016Q1

REPORT INFORMATION
  Report Type: Spontaneous
  Country: US (occurrence: None)
  Receive Date: 20160125
  Receipt Date: 20160125
  Transmission Date: 20160526
  Serious: Yes (Disabling)
  Sender: FDA-Public Use
  Company Number: None

PATIENT
  Age: 64 Year
  Sex: Female
  Weight: 54.43 kg

DRUGS (20)
  1. IPRATROPIUM BROMIDE. [Concomitant]
     Active Substance: IPRATROPIUM BROMIDE
  2. CITALOPRAM [Concomitant]
     Active Substance: CITALOPRAM HYDROBROMIDE
  3. NITROFURANTOIN. [Concomitant]
     Active Substance: NITROFURANTOIN
  4. TRIIODOTHYRONINE [Concomitant]
     Active Substance: LIOTHYRONINE SODIUM
  5. ONDANSETRON [Suspect]
     Active Substance: ONDANSETRON
     Indication: PROCEDURAL NAUSEA
     Dosage: 1 PILL AS NEEDED TAKEN BY MOUTH
     Route: 048
     Dates: start: 20160108, end: 20160120
  6. PROBIOTIC [Concomitant]
     Active Substance: PROBIOTICS NOS
  7. VITAMIN K2 [Concomitant]
     Active Substance: MENAQUINONE 6
  8. ESTRACE [Concomitant]
     Active Substance: ESTRADIOL
  9. FAMCICLOVIR. [Concomitant]
     Active Substance: FAMCICLOVIR
  10. GUAIFENESIN. [Concomitant]
     Active Substance: GUAIFENESIN
  11. GABAPENTIN. [Concomitant]
     Active Substance: GABAPENTIN
  12. ACETAMINOPHEN / TRAMADOL HYDROCHLORIDE [Concomitant]
     Active Substance: ACETAMINOPHEN\TRAMADOL HYDROCHLORIDE
  13. MELATONIN [Concomitant]
     Active Substance: MELATONIN
  14. NALTREXONE [Concomitant]
     Active Substance: NALTREXONE
  15. CALCIUM [Concomitant]
     Active Substance: CALCIUM
  16. PLAQUENIL [Concomitant]
     Active Substance: HYDROXYCHLOROQUINE SULFATE
  17. FIBRINEX [Concomitant]
  18. KRILL OIL [Concomitant]
     Active Substance: DIETARY SUPPLEMENT
  19. MAGNESIUM [Concomitant]
     Active Substance: MAGNESIUM
  20. VITAMIN D [Concomitant]
     Active Substance: CHOLECALCIFEROL

REACTIONS (3)
  - Product taste abnormal [None]
  - Chemical injury [None]
  - Throat irritation [None]

NARRATIVE: CASE EVENT DATE: 20160120
